FAERS Safety Report 9393478 (Version 1)
Quarter: 2013Q3

REPORT INFORMATION
  Report Type: Spontaneous
  Country: JP (occurrence: JP)
  Receive Date: 20130710
  Receipt Date: 20130710
  Transmission Date: 20140515
  Serious: Yes (Hospitalization)
  Sender: FDA-Public Use
  Company Number: PHHY2013JP071134

PATIENT
  Age: 79 Year
  Sex: Female

DRUGS (3)
  1. RIFAMPICIN SANDOZ [Suspect]
     Indication: ATYPICAL MYCOBACTERIAL INFECTION
     Dosage: 300 MG, DAILY
     Route: 048
     Dates: start: 20130116, end: 20130425
  2. CLARITHROMYCIN [Concomitant]
     Indication: ATYPICAL MYCOBACTERIAL INFECTION
  3. ETHAMBUTOL HYDROCHLORIDE [Concomitant]
     Indication: ATYPICAL MYCOBACTERIAL INFECTION

REACTIONS (1)
  - Pneumonia [Recovering/Resolving]
